FAERS Safety Report 9889362 (Version 3)
Quarter: 2014Q4

REPORT INFORMATION
  Report Type: Spontaneous
  Country: US (occurrence: US)
  Receive Date: 20140211
  Receipt Date: 20141015
  Transmission Date: 20150529
  Serious: Yes (Hospitalization)
  Sender: FDA-Public Use
  Company Number: US-009507513-1402USA005049

PATIENT
  Sex: Female
  Weight: 98.87 kg

DRUGS (1)
  1. NUVARING [Suspect]
     Active Substance: ETHINYL ESTRADIOL\ETONOGESTREL
     Indication: PRODUCT USED FOR UNKNOWN INDICATION
     Dosage: UNK
     Route: 067

REACTIONS (6)
  - Uterine haemorrhage [Unknown]
  - Uterine dilation and curettage [Unknown]
  - Cervical dysplasia [Unknown]
  - Uterine dilation and evacuation [Unknown]
  - Uterine haemorrhage [Unknown]
  - Depression [Unknown]

NARRATIVE: CASE EVENT DATE: 201202
